FAERS Safety Report 10743201 (Version 1)
Quarter: 2015Q1

REPORT INFORMATION
  Report Type: Spontaneous
  Country: US (occurrence: US)
  Receive Date: 20150127
  Receipt Date: 20150127
  Transmission Date: 20150721
  Serious: No
  Sender: FDA-Public Use
  Company Number: US-009507513-1501USA010530

PATIENT
  Age: 48 Year
  Sex: Female

DRUGS (4)
  1. SINGULAIR [Suspect]
     Active Substance: MONTELUKAST SODIUM
     Indication: ASTHMA
     Dosage: 1 TABLET, QD
     Route: 048
     Dates: start: 201001
  2. SINGULAIR [Suspect]
     Active Substance: MONTELUKAST SODIUM
     Dosage: DOSE AND FREQUENCY UNSPECIFIED
     Route: 048
  3. CELEBREX [Concomitant]
     Active Substance: CELECOXIB
     Dosage: DOSE AND FREQUENCY UNSPECIFIED
  4. CHLORPHENIRAMINE MALEATE. [Concomitant]
     Active Substance: CHLORPHENIRAMINE MALEATE
     Dosage: 5 MG, QD
     Route: 048

REACTIONS (7)
  - Epistaxis [Not Recovered/Not Resolved]
  - Product taste abnormal [Unknown]
  - Rash [Recovering/Resolving]
  - Heart rate increased [Not Recovered/Not Resolved]
  - Epistaxis [Unknown]
  - Feeling abnormal [Not Recovered/Not Resolved]
  - Headache [Not Recovered/Not Resolved]

NARRATIVE: CASE EVENT DATE: 20150105
